FAERS Safety Report 9040965 (Version 1)
Quarter: 2013Q1

REPORT INFORMATION
  Report Type: Spontaneous
  Country: IE (occurrence: None)
  Receive Date: 20130123
  Receipt Date: 20130123
  Transmission Date: 20140127
  Serious: Yes (Hospitalization)
  Sender: FDA-Public Use
  Company Number: None

PATIENT
  Sex: Male
  Weight: 95.7 kg

DRUGS (2)
  1. CISPLATIN [Suspect]
  2. VINORELBINE TARTRATE [Suspect]
     Dates: end: 20121231

REACTIONS (1)
  - Lower respiratory tract infection [None]
